FAERS Safety Report 4913739-6 (Version None)
Quarter: 2006Q1

REPORT INFORMATION
  Report Type: 
  Country: None (occurrence: None)
  Receive Date: 20060216
  Receipt Date: 20060206
  Transmission Date: 20060701
  Serious: Yes (Death)
  Sender: FDA-Public Use
  Company Number: US-AVENTIS-200611404US

PATIENT
  Sex: Female

DRUGS (6)
  1. KETEK [Suspect]
     Indication: BRONCHITIS
     Route: 048
     Dates: start: 20060103
  2. EFFEXOR [Concomitant]
     Dosage: DOSE: UNK
  3. SEROQUEL [Concomitant]
     Dosage: DOSE: UNK
  4. PREVACID [Concomitant]
     Dosage: DOSE: UNK
  5. CELEXA [Concomitant]
     Dosage: DOSE: UNK
  6. HALDOL [Concomitant]
     Dosage: DOSE: UNK

REACTIONS (3)
  - FALL [None]
  - HAEMORRHAGE [None]
  - RIB FRACTURE [None]
